FAERS Safety Report 12846609 (Version 1)
Quarter: 2016Q4

REPORT INFORMATION
  Report Type: Report from Study
  Country: US (occurrence: US)
  Receive Date: 20161014
  Receipt Date: 20161014
  Transmission Date: 20170207
  Serious: No
  Sender: FDA-Public Use
  Company Number: US-AMGEN-USASL2016138268

PATIENT
  Age: 60 Year
  Sex: Male

DRUGS (1)
  1. ENBREL [Suspect]
     Active Substance: ETANERCEPT
     Indication: PSORIATIC ARTHROPATHY
     Dosage: UNK
     Route: 065

REACTIONS (6)
  - Nodule [Unknown]
  - Lacrimation increased [Unknown]
  - Psoriasis [Not Recovered/Not Resolved]
  - Eye allergy [Unknown]
  - Hyperhidrosis [Unknown]
  - Therapy non-responder [Not Recovered/Not Resolved]
